FAERS Safety Report 6979945-4 (Version None)
Quarter: 2010Q3

REPORT INFORMATION
  Report Type: 
  Country: None (occurrence: None)
  Receive Date: 20100909
  Receipt Date: 20100826
  Transmission Date: 20110219
  Serious: Yes (Other)
  Sender: FDA-Public Use
  Company Number: DSJ-2010-11956

PATIENT
  Age: 60 Year
  Sex: Female

DRUGS (5)
  1. BENICAR HCT [Suspect]
     Indication: HYPERTENSION
     Dosage: 20/12.5 MG (1 IN 1 D), PER ORAL, 40/12.5 MG (1 IN 1 D),PER ORAL
     Route: 048
     Dates: start: 20100401, end: 20100701
  2. BENICAR HCT [Suspect]
     Indication: HYPERTENSION
     Dosage: 20/12.5 MG (1 IN 1 D), PER ORAL, 40/12.5 MG (1 IN 1 D),PER ORAL
     Route: 048
     Dates: start: 20100701
  3. METFORMIN HCL [Concomitant]
  4. SULFASALAZINE (SULFASALAZINE) (SULFASALAZINE) [Concomitant]
  5. INDOMETHACIN [Concomitant]

REACTIONS (4)
  - DRUG INEFFECTIVE [None]
  - HEADACHE [None]
  - MALAISE [None]
  - PARAESTHESIA [None]
